FAERS Safety Report 9171341 (Version 4)
Quarter: 2015Q1

REPORT INFORMATION
  Report Type: Spontaneous
  Country: US (occurrence: US)
  Receive Date: 20130319
  Receipt Date: 20150120
  Transmission Date: 20150721
  Serious: Yes (Hospitalization)
  Sender: FDA-Public Use
  Company Number: US-BAYER-2013-031299

PATIENT
  Age: 42 Year
  Sex: Female
  Weight: 88.89 kg

DRUGS (13)
  1. ALBUTEROL. [Concomitant]
     Active Substance: ALBUTEROL
     Indication: ASTHMA
  2. QUINAPRIL [Concomitant]
     Active Substance: QUINAPRIL\QUINAPRIL HYDROCHLORIDE
     Dosage: 12.5 MG, UNK
  3. TRAMADOL [Concomitant]
     Active Substance: TRAMADOL
     Dosage: 50 MG, UNK
     Route: 048
  4. QUINAPRIL [Concomitant]
     Active Substance: QUINAPRIL\QUINAPRIL HYDROCHLORIDE
     Dosage: 10 MG, UNK
  5. FLEXERIL [Concomitant]
     Active Substance: CYCLOBENZAPRINE HYDROCHLORIDE
     Indication: BACK PAIN
     Dosage: UNK
     Dates: start: 20091014
  6. VOLTARENE [Concomitant]
     Active Substance: DICLOFENAC SODIUM
     Indication: BACK PAIN
     Dosage: 1 %, UNK
     Route: 061
     Dates: start: 20091014
  7. METFORMIN [Concomitant]
     Active Substance: METFORMIN HYDROCHLORIDE
     Dosage: 500 MG, UNK
  8. PRILOSEC [Concomitant]
     Active Substance: OMEPRAZOLE MAGNESIUM
     Dosage: 20 MG, UNK
     Route: 048
  9. IBUPROFEN AL [Concomitant]
     Indication: PAIN
     Dosage: 600 MG, UNK
     Route: 048
  10. IBUPROFEN AL [Concomitant]
     Indication: PYREXIA
  11. MIRENA [Suspect]
     Active Substance: LEVONORGESTREL
     Indication: CONTRACEPTION
     Dosage: 20 MCG/24HR, CONT
     Route: 015
     Dates: start: 20081009, end: 20100215
  12. HYDROCHLOROTHIAZID [Concomitant]
     Active Substance: HYDROCHLOROTHIAZIDE
     Dosage: 25 MG, UNK
     Route: 048
  13. FLOVENT [Concomitant]
     Active Substance: FLUTICASONE PROPIONATE

REACTIONS (11)
  - Device issue [None]
  - Sexual dysfunction [None]
  - Injury [None]
  - Uterine perforation [None]
  - Psychological trauma [None]
  - Depression [None]
  - Anxiety [None]
  - Emotional distress [None]
  - Abdominal pain upper [None]
  - Sleep disorder [None]
  - Pain [None]

NARRATIVE: CASE EVENT DATE: 201001
